FAERS Safety Report 20707754 (Version 2)
Quarter: 2022Q2

REPORT INFORMATION
  Report Type: Spontaneous
  Country: AE (occurrence: AE)
  Receive Date: 20220413
  Receipt Date: 20220502
  Transmission Date: 20220721
  Serious: Yes (Life-Threatening, Hospitalization, Other)
  Sender: FDA-Public Use
  Company Number: None

PATIENT
  Age: 45 Year
  Sex: Female

DRUGS (4)
  1. PREDNISOLONE [Suspect]
     Active Substance: PREDNISOLONE
     Indication: Ophthalmoplegia
     Dosage: 1 MILLIGRAM/KILOGRAM, DAILY (HIGH-DOSE)
     Route: 048
  2. PREDNISOLONE [Suspect]
     Active Substance: PREDNISOLONE
     Indication: Squamous cell carcinoma of the vagina
  3. CARBOPLATIN [Suspect]
     Active Substance: CARBOPLATIN
     Indication: Squamous cell carcinoma of the vagina
     Dosage: UNK UNK, CYCLICAL, PER 21 DAYS, AREA UNDER THE CURVE OF 5, 3 CYCLES
     Route: 065
  4. PACLITAXEL [Suspect]
     Active Substance: PACLITAXEL
     Indication: Squamous cell carcinoma of the vagina
     Dosage: 175 MILLIGRAM/SQ. METER, EVERY 21 DAYS FOR 3 CYCLES
     Route: 042

REACTIONS (4)
  - Diabetic ketoacidosis [Unknown]
  - Myopathy [Unknown]
  - Drug ineffective [Unknown]
  - Off label use [Unknown]
